FAERS Safety Report 18569395 (Version 1)
Quarter: 2020Q4

REPORT INFORMATION
  Report Type: Spontaneous
  Country: US (occurrence: US)
  Receive Date: 20201202
  Receipt Date: 20201202
  Transmission Date: 20210114
  Serious: No
  Sender: FDA-Public Use
  Company Number: None

PATIENT
  Age: 67 Year
  Sex: Female

DRUGS (1)
  1. PRALUENT [Suspect]
     Active Substance: ALIROCUMAB
     Dosage: ?          OTHER FREQUENCY:EVERY 14 DAYS;?
     Route: 058
     Dates: start: 20190910, end: 20201110

REACTIONS (5)
  - Dyspnoea [None]
  - Palpitations [None]
  - Cardiac flutter [None]
  - Arrhythmia [None]
  - Headache [None]

NARRATIVE: CASE EVENT DATE: 20201114
